FAERS Safety Report 8621618-6 (Version None)
Quarter: 2012Q3

REPORT INFORMATION
  Report Type: 
  Country: None (occurrence: None)
  Receive Date: 20120820
  Receipt Date: 20120820
  Transmission Date: 20120928
  Serious: Yes (Hospitalization)
  Sender: FDA-Public Use
  Company Number: None

PATIENT
  Sex: Male
  Weight: 77.35 kg

DRUGS (1)
  1. ERBITUX [Suspect]

REACTIONS (3)
  - ORAL PAIN [None]
  - DEHYDRATION [None]
  - WEIGHT DECREASED [None]
